FAERS Safety Report 23662513 (Version 2)
Quarter: 2024Q2

REPORT INFORMATION
  Report Type: Spontaneous
  Country: US (occurrence: US)
  Receive Date: 20240322
  Receipt Date: 20240413
  Transmission Date: 20240715
  Serious: Yes (Hospitalization)
  Sender: FDA-Public Use
  Company Number: US-TEVA-VS-3173606

PATIENT
  Age: 71 Year
  Sex: Male

DRUGS (3)
  1. SILDENAFIL [Suspect]
     Active Substance: SILDENAFIL
     Indication: Pulmonary veno-occlusive disease
     Dosage: LOW-DOSE
     Route: 065
  2. MITOMYCIN [Suspect]
     Active Substance: MITOMYCIN
     Indication: Anal cancer
     Route: 065
  3. FLUOROURACIL [Concomitant]
     Active Substance: FLUOROURACIL
     Indication: Anal cancer
     Route: 065

REACTIONS (4)
  - Pulmonary veno-occlusive disease [Unknown]
  - Lymphadenopathy mediastinal [Unknown]
  - Treatment failure [Unknown]
  - Pulmonary oedema [Unknown]
